FAERS Safety Report 5388543-8 (Version None)
Quarter: 2007Q3

REPORT INFORMATION
  Report Type: 
  Country: None (occurrence: None)
  Receive Date: 20070716
  Receipt Date: 20070705
  Transmission Date: 20080115
  Serious: Yes (Death, Other)
  Sender: FDA-Public Use
  Company Number: US-PFIZER INC-2007040224

PATIENT
  Sex: Male

DRUGS (2)
  1. LYRICA [Suspect]
     Indication: RADICULITIS LUMBOSACRAL
     Route: 048
  2. FLEXERIL [Concomitant]

REACTIONS (3)
  - ACIDOSIS [None]
  - HEPATIC FAILURE [None]
  - RENAL FAILURE [None]
